FAERS Safety Report 11336036 (Version 1)
Quarter: 2015Q3

REPORT INFORMATION
  Report Type: Spontaneous
  Country: US (occurrence: None)
  Receive Date: 20150731
  Receipt Date: 20150731
  Transmission Date: 20151125
  Serious: No
  Sender: FDA-Public Use
  Company Number: None

PATIENT
  Age: 65 Year
  Sex: Female

DRUGS (1)
  1. VOTRIENT [Suspect]
     Active Substance: PAZOPANIB HYDROCHLORIDE
     Indication: RENAL CANCER
     Dosage: 3 TAB
     Route: 048

REACTIONS (3)
  - Dry mouth [None]
  - Activities of daily living impaired [None]
  - Dysgeusia [None]

NARRATIVE: CASE EVENT DATE: 20141225
